FAERS Safety Report 8953725 (Version 1)
Quarter: 2012Q4

REPORT INFORMATION
  Report Type: 
  Country: US (occurrence: US)
  Receive Date: 20121206
  Receipt Date: 20121206
  Transmission Date: 20130627
  Serious: No
  Sender: FDA-Public Use
  Company Number: US-ASTRAZENECA-2012SE90112

PATIENT
  Age: 71 Year
  Sex: Female
  Weight: 72.6 kg

DRUGS (2)
  1. SYMBICORT PMDI [Suspect]
     Indication: DYSPNOEA
     Dosage: 160/4.5 UG TWO PUFFS DAILY
     Route: 055
     Dates: start: 20121128
  2. PROTONIX [Concomitant]
     Indication: GASTROOESOPHAGEAL REFLUX DISEASE

REACTIONS (3)
  - Tremor [Unknown]
  - Nervousness [Unknown]
  - Off label use [Unknown]
